FAERS Safety Report 15630026 (Version 1)
Quarter: 2018Q4

REPORT INFORMATION
  Report Type: Report from Study
  Country: US (occurrence: US)
  Receive Date: 20181118
  Receipt Date: 20181118
  Transmission Date: 20190205
  Serious: Yes (Other)
  Sender: FDA-Public Use
  Company Number: US-UNITED THERAPEUTICS-UNT-2018-017936

PATIENT
  Sex: Male
  Weight: 101.59 kg

DRUGS (7)
  1. UT-15C SR [Suspect]
     Active Substance: TREPROSTINIL DIOLAMINE
     Dosage: UNK
     Route: 048
  2. UT-15C SR [Suspect]
     Active Substance: TREPROSTINIL DIOLAMINE
     Dosage: 1 MG
     Route: 048
  3. LETAIRIS [Concomitant]
     Active Substance: AMBRISENTAN
     Indication: PRODUCT USED FOR UNKNOWN INDICATION
     Route: 065
  4. NIFEDIPINE. [Concomitant]
     Active Substance: NIFEDIPINE
     Indication: PRODUCT USED FOR UNKNOWN INDICATION
     Route: 065
  5. WARFARIN [Concomitant]
     Active Substance: WARFARIN
     Indication: PRODUCT USED FOR UNKNOWN INDICATION
     Route: 065
  6. UT-15C SR [Suspect]
     Active Substance: TREPROSTINIL DIOLAMINE
     Indication: PULMONARY ARTERIAL HYPERTENSION
     Dosage: 6 MG, BID
     Route: 048
     Dates: start: 20171025
  7. UT-15C SR [Suspect]
     Active Substance: TREPROSTINIL DIOLAMINE
     Dosage: 5 MG
     Route: 048

REACTIONS (6)
  - Pain in jaw [Unknown]
  - Fall [Unknown]
  - Syncope [Unknown]
  - Dyspnoea exertional [Unknown]
  - Rib fracture [Unknown]
  - Pain in extremity [Unknown]
